FAERS Safety Report 14066281 (Version 2)
Quarter: 2017Q4

REPORT INFORMATION
  Report Type: Report from Study
  Country: CA (occurrence: CA)
  Receive Date: 20171009
  Receipt Date: 20171018
  Transmission Date: 20180321
  Serious: Yes (Hospitalization, Other)
  Sender: FDA-Public Use
  Company Number: CA-JNJFOC-20170701118

PATIENT
  Age: 64 Year
  Sex: Female

DRUGS (4)
  1. REMICADE [Suspect]
     Active Substance: INFLIXIMAB
     Indication: CROHN^S DISEASE
     Route: 042
  2. REMICADE [Suspect]
     Active Substance: INFLIXIMAB
     Indication: CROHN^S DISEASE
     Route: 042
     Dates: start: 20160926
  3. METHOTREXATE. [Concomitant]
     Active Substance: METHOTREXATE
     Route: 065
  4. REMICADE [Suspect]
     Active Substance: INFLIXIMAB
     Indication: CROHN^S DISEASE
     Route: 042

REACTIONS (9)
  - Product use issue [Unknown]
  - Kidney infection [Unknown]
  - Blood magnesium decreased [Unknown]
  - Off label use [Unknown]
  - Asthenia [Unknown]
  - Crohn^s disease [Not Recovered/Not Resolved]
  - Electrolyte imbalance [Unknown]
  - Drug ineffective [Unknown]
  - Purulence [Unknown]

NARRATIVE: CASE EVENT DATE: 2017
